FAERS Safety Report 8923792 (Version 2)
Quarter: 2013Q4

REPORT INFORMATION
  Report Type: Spontaneous
  Country: SE (occurrence: SE)
  Receive Date: 20121126
  Receipt Date: 20131126
  Transmission Date: 20140711
  Serious: Yes (Other)
  Sender: FDA-Public Use
  Company Number: SE-009507513-1211SWE008859

PATIENT
  Age: 50 Year
  Sex: Female

DRUGS (5)
  1. SINGULAIR [Suspect]
     Indication: ASTHMA
     Dosage: UNK
     Dates: start: 201207
  2. BUDESONIDE [Concomitant]
  3. BRUFEN [Concomitant]
     Dosage: 800 MG, UNK
  4. OXIS TURBUHALER [Concomitant]
  5. HORMONES (UNSPECIFIED) [Concomitant]

REACTIONS (5)
  - Suicidal ideation [Recovered/Resolved]
  - Malaise [Recovered/Resolved]
  - Pruritus [Recovered/Resolved]
  - Depression [Recovered/Resolved]
  - Irritability [Recovered/Resolved]
